FAERS Safety Report 4677006-0 (Version None)
Quarter: 2005Q2

REPORT INFORMATION
  Report Type: 
  Country: None (occurrence: None)
  Receive Date: 20050526
  Receipt Date: 20050517
  Transmission Date: 20051028
  Serious: Yes (Death)
  Sender: FDA-Public Use
  Company Number: 2005076121

PATIENT
  Age: 67 Year
  Sex: Male

DRUGS (7)
  1. TORVAST (ATORVASTATIN) [Suspect]
     Indication: ILL-DEFINED DISORDER
     Dosage: 20 MG (20 MG, 1 IN 1 D), ORAL
     Route: 048
     Dates: start: 20030101, end: 20050509
  2. ALL OTHER THERAPEUTIC PRODUCTS [Concomitant]
  3. HALDOL [Concomitant]
  4. TEGRETOL [Concomitant]
  5. LAMICTAL [Concomitant]
  6. CLONAZEPAM [Concomitant]
  7. GARDENALE                 (PHENOBARBITAL SODIUM) [Concomitant]

REACTIONS (2)
  - HEPATITIS FULMINANT [None]
  - MYOPATHY [None]
